FAERS Safety Report 5056541-X (Version None)
Quarter: 2006Q3

REPORT INFORMATION
  Report Type: 
  Country: None (occurrence: None)
  Receive Date: 20060714
  Receipt Date: 20060629
  Transmission Date: 20061208
  Serious: Yes (Death)
  Sender: FDA-Public Use
  Company Number: 2006S1001772

PATIENT
  Age: 40 Year
  Sex: Male
  Weight: 106.5953 kg

DRUGS (5)
  1. FENTANYL TRANSDERMAL SYSTEM [Suspect]
     Indication: PAIN
     Dosage: 50 UG/HR; Q3D; TRANS
     Route: 062
  2. FENTANYL TRANSDERMAL SYSTEM [Suspect]
     Indication: UPPER LIMB FRACTURE
     Dosage: 50 UG/HR; Q3D; TRANS
     Route: 062
  3. FENTANYL TRANSDERMAL SYSTEM [Suspect]
     Indication: WRIST FRACTURE
     Dosage: 50 UG/HR; Q3D; TRANS
     Route: 062
  4. HYDROCODONE [Concomitant]
  5. PERCOCET [Concomitant]

REACTIONS (12)
  - ACCIDENTAL OVERDOSE [None]
  - BRONCHOPNEUMONIA [None]
  - DRUG ABUSER [None]
  - DRUG INTERACTION [None]
  - DRUG SCREEN POSITIVE [None]
  - LOSS OF CONSCIOUSNESS [None]
  - ROAD TRAFFIC ACCIDENT [None]
  - SELF-MEDICATION [None]
  - UPPER LIMB FRACTURE [None]
  - WHIPLASH INJURY [None]
  - WRIST FRACTURE [None]
  - WRONG TECHNIQUE IN DRUG USAGE PROCESS [None]
